FAERS Safety Report 4962297-9 (Version None)
Quarter: 2006Q2

REPORT INFORMATION
  Report Type: 
  Country: None (occurrence: None)
  Receive Date: 20060404
  Receipt Date: 20050906
  Transmission Date: 20061013
  Serious: No
  Sender: FDA-Public Use
  Company Number: US-BRISTOL-MYERS SQUIBB COMPANY-13101407

PATIENT
  Age: 77 Year
  Sex: Female
  Weight: 58 kg

DRUGS (4)
  1. HYDREA [Suspect]
     Indication: ESSENTIAL THROMBOCYTHAEMIA
     Route: 048
  2. SYNTHROID [Concomitant]
     Indication: HYPOTHYROIDISM
  3. AMOXICILLIN [Concomitant]
     Indication: BRONCHITIS
  4. ZITHROMAX [Concomitant]
     Indication: BRONCHITIS

REACTIONS (3)
  - BURNING SENSATION [None]
  - LIP DRY [None]
  - LIP EXFOLIATION [None]
